FAERS Safety Report 9444742 (Version 1)
Quarter: 2013Q3

REPORT INFORMATION
  Report Type: Spontaneous
  Country: AU (occurrence: AU)
  Receive Date: 20130807
  Receipt Date: 20130807
  Transmission Date: 20140515
  Serious: No
  Sender: FDA-Public Use
  Company Number: PHHY2013AU084758

PATIENT
  Sex: 0

DRUGS (3)
  1. STALEVO [Suspect]
     Indication: PARKINSON^S DISEASE
     Dosage: UNK UKN, UNK
  2. GLIVEC [Interacting]
     Indication: CHRONIC MYELOID LEUKAEMIA
     Dosage: UNK UKN, UNK
  3. TASIGNA [Interacting]
     Dosage: UNK UKN, UNK

REACTIONS (1)
  - Drug interaction [Unknown]
